FAERS Safety Report 9100663 (Version 1)
Quarter: 2013Q1

REPORT INFORMATION
  Report Type: Spontaneous
  Country: ZA (occurrence: ZA)
  Receive Date: 20130215
  Receipt Date: 20130215
  Transmission Date: 20140127
  Serious: Yes (Other)
  Sender: FDA-Public Use
  Company Number: ZA-JNJFOC-20130203402

PATIENT
  Sex: Female

DRUGS (2)
  1. REVELLEX [Suspect]
     Indication: JUVENILE IDIOPATHIC ARTHRITIS
     Route: 042
     Dates: start: 20130122
  2. REVELLEX [Suspect]
     Indication: JUVENILE IDIOPATHIC ARTHRITIS
     Route: 042

REACTIONS (2)
  - Epstein-Barr virus infection [Unknown]
  - Herpes zoster [Unknown]
